FAERS Safety Report 5675250-7 (Version None)
Quarter: 2008Q1

REPORT INFORMATION
  Report Type: 
  Country: None (occurrence: None)
  Receive Date: 20080320
  Receipt Date: 20080310
  Transmission Date: 20080703
  Serious: Yes (Other)
  Sender: FDA-Public Use
  Company Number: JP-ELI_LILLY_AND_COMPANY-JP200803002402

PATIENT
  Age: 55 Year
  Sex: Female

DRUGS (1)
  1. EVISTA [Suspect]
     Route: 048

REACTIONS (1)
  - BREAST CANCER [None]
